FAERS Safety Report 10622444 (Version 3)
Quarter: 2015Q1

REPORT INFORMATION
  Report Type: Spontaneous
  Country: GB (occurrence: GB)
  Receive Date: 20141203
  Receipt Date: 20150106
  Transmission Date: 20150720
  Serious: Yes (Other)
  Sender: FDA-Public Use
  Company Number: GB-CELGENE-GBR-2014113565

PATIENT
  Age: 76 Year

DRUGS (5)
  1. ACICLOVIR [Concomitant]
     Active Substance: ACYCLOVIR
     Indication: PROPHYLAXIS
     Route: 048
     Dates: start: 20090526, end: 20141120
  2. REVLIMID [Suspect]
     Active Substance: LENALIDOMIDE
     Indication: PRODUCT USED FOR UNKNOWN INDICATION
     Dosage: 15 MILLIGRAM
     Route: 048
     Dates: start: 20140805, end: 20141027
  3. DEXAMETHASONE. [Concomitant]
     Active Substance: DEXAMETHASONE
     Indication: PLASMA CELL MYELOMA
     Route: 048
     Dates: start: 20140728, end: 20141128
  4. RANITIDINE [Concomitant]
     Active Substance: RANITIDINE\RANITIDINE HYDROCHLORIDE
     Indication: PLASMA CELL MYELOMA
     Route: 048
     Dates: start: 20090826, end: 20141030
  5. GRANISETRON [Concomitant]
     Active Substance: GRANISETRON
     Indication: PLASMA CELL MYELOMA
     Route: 048
     Dates: start: 20140728, end: 20141027

REACTIONS (2)
  - Complex partial seizures [Recovered/Resolved with Sequelae]
  - Complex partial seizures [Recovered/Resolved with Sequelae]

NARRATIVE: CASE EVENT DATE: 20141027
